FAERS Safety Report 8869742 (Version 1)
Quarter: 2012Q4

REPORT INFORMATION
  Report Type: 
  Country: US (occurrence: US)
  Receive Date: 20121026
  Receipt Date: 20121026
  Transmission Date: 20130627
  Serious: No
  Sender: FDA-Public Use
  Company Number: US-AMGEN-USASP2012045824

PATIENT
  Sex: Male

DRUGS (8)
  1. ENBREL [Suspect]
     Indication: PRODUCT USED FOR UNKNOWN INDICATION
     Dosage: 50 mg, qwk
     Route: 058
  2. CENTRUM                            /00554501/ [Concomitant]
  3. METHOTREXATE [Concomitant]
     Dosage: 2.5 mg, UNK
  4. ORENCIA [Concomitant]
     Dosage: 125 mg/ml, UNK
  5. PREDNISONE [Concomitant]
     Dosage: 1 mg, UNK
  6. FISH OIL [Concomitant]
     Dosage: UNK
  7. PERCOCET                           /00446701/ [Concomitant]
     Dosage: 10-325mg
  8. FOLIC ACID [Concomitant]
     Dosage: 20 mg, UNK

REACTIONS (1)
  - Drug ineffective [Unknown]
